FAERS Safety Report 5809432-8 (Version None)
Quarter: 2008Q3

REPORT INFORMATION
  Report Type: 
  Country: None (occurrence: None)
  Receive Date: 20080715
  Receipt Date: 20080703
  Transmission Date: 20090109
  Serious: Yes (Hospitalization)
  Sender: FDA-Public Use
  Company Number: FR-WYE-H04824708

PATIENT
  Age: 83 Year
  Sex: Female

DRUGS (14)
  1. INIPOMP [Suspect]
     Route: 048
  2. ALDACTAZINE [Suspect]
     Route: 048
     Dates: end: 20080504
  3. ZOLOFT [Suspect]
     Dosage: UNKNOWN
     Route: 048
     Dates: end: 20080504
  4. PRITOR [Concomitant]
     Dosage: UNKNOWN
  5. ACTONEL [Concomitant]
     Dosage: UNKNOWN
     Route: 048
  6. ZOPICLONE [Concomitant]
     Dosage: UNKNOWN
     Route: 048
  7. CALCIDOSE [Concomitant]
     Dosage: UNKNOWN
     Route: 048
  8. INNOHEP [Concomitant]
     Dosage: UNKNOWN
     Route: 058
  9. ASPEGIC 325 [Concomitant]
     Dosage: UNKNOWN
     Route: 048
  10. CORTANCYL [Suspect]
     Route: 048
     Dates: start: 20080301
  11. CORTANCYL [Suspect]
     Route: 048
     Dates: end: 20080516
  12. CORTANCYL [Suspect]
     Route: 048
     Dates: start: 20080517, end: 20080531
  13. CORTANCYL [Suspect]
     Route: 048
     Dates: start: 20080601
  14. POTASSIUM CHLORIDE [Concomitant]
     Dosage: UNKNOWN
     Route: 048

REACTIONS (11)
  - ANOREXIA [None]
  - ASTHENIA [None]
  - BLOOD CHLORIDE DECREASED [None]
  - CONFUSIONAL STATE [None]
  - DEPRESSION [None]
  - FALL [None]
  - GENERAL PHYSICAL HEALTH DETERIORATION [None]
  - HYPONATRAEMIA [None]
  - NAUSEA [None]
  - PERIORBITAL HAEMATOMA [None]
  - VOMITING [None]
